FAERS Safety Report 14787693 (Version 2)
Quarter: 2018Q2

REPORT INFORMATION
  Report Type: Spontaneous
  Country: US (occurrence: US)
  Receive Date: 20180421
  Receipt Date: 20180528
  Transmission Date: 20180711
  Serious: No
  Sender: FDA-Public Use
  Company Number: US-JNJFOC-20180403984

PATIENT
  Age: 63 Year
  Sex: Male
  Weight: 72.58 kg

DRUGS (2)
  1. INVOKAMET XR [Suspect]
     Active Substance: CANAGLIFLOZIN\METFORMIN HYDROCHLORIDE
     Indication: TYPE 2 DIABETES MELLITUS
     Dosage: 150/500MG
     Route: 048
     Dates: start: 201803
  2. INVOKAMET [Suspect]
     Active Substance: CANAGLIFLOZIN\METFORMIN HYDROCHLORIDE
     Indication: TYPE 2 DIABETES MELLITUS
     Dosage: 150/500 MG
     Route: 048
     Dates: start: 201803

REACTIONS (4)
  - Product packaging issue [Unknown]
  - Wrong drug administered [Unknown]
  - Drug dose omission [Unknown]
  - Product dispensing error [Unknown]

NARRATIVE: CASE EVENT DATE: 201803
